FAERS Safety Report 8967896 (Version 1)
Quarter: 2012Q4

REPORT INFORMATION
  Report Type: 
  Country: US (occurrence: US)
  Receive Date: 20121218
  Receipt Date: 20121218
  Transmission Date: 20130627
  Serious: No
  Sender: FDA-Public Use
  Company Number: US-GLAXOSMITHKLINE-A0964803A

PATIENT
  Age: 78 Year
  Sex: Female

DRUGS (13)
  1. COREG CR [Suspect]
     Indication: CARDIAC FAILURE CONGESTIVE
     Dosage: 20MG Per day
     Route: 048
     Dates: start: 20111227
  2. AVAPRO [Concomitant]
     Dates: end: 20120227
  3. SPIRONOLACTONE [Concomitant]
  4. LANOXIN [Concomitant]
  5. ASPIRIN [Concomitant]
  6. MERCAPTOPURINE [Concomitant]
  7. QUESTRAN [Concomitant]
  8. FOLIC ACID [Concomitant]
  9. COMBIVENT [Concomitant]
  10. SYMBICORT [Concomitant]
  11. CENTRUM SILVER [Concomitant]
  12. FISH OIL [Concomitant]
  13. VITAMIN C [Concomitant]

REACTIONS (2)
  - Blood pressure decreased [Recovered/Resolved]
  - Drug administration error [Unknown]
